FAERS Safety Report 24853759 (Version 4)
Quarter: 2025Q2

REPORT INFORMATION
  Report Type: Spontaneous
  Country: JP (occurrence: JP)
  Receive Date: 20250117
  Receipt Date: 20250403
  Transmission Date: 20250717
  Serious: Yes (Hospitalization)
  Sender: CATALYST PHARMA
  Company Number: JP-CATALYSTPHARMACEUTICALPARTNERS-JP-CATA-25-00067

PATIENT
  Age: 17 Year
  Sex: Male

DRUGS (5)
  1. PERAMPANEL [Suspect]
     Active Substance: PERAMPANEL
     Indication: Epilepsy
     Dosage: 4.0 MILLIGRAM(S) (4 MILLIGRAM(S), 1 IN 1 DAY)
     Route: 048
  2. PERAMPANEL [Suspect]
     Active Substance: PERAMPANEL
     Dosage: 80.0 MILLIGRAM(S) (80 MILLIGRAM(S), 1 IN 1 DAY)
     Route: 048
  3. PERAMPANEL [Suspect]
     Active Substance: PERAMPANEL
     Dosage: 4.0 MILLIGRAM(S) (4 MILLIGRAM(S), 1 IN 1 DAY)
     Route: 048
  4. PERAMPANEL [Suspect]
     Active Substance: PERAMPANEL
     Dosage: 4.0 MILLIGRAM(S) (4 MILLIGRAM(S), 1 IN 1 DAY)
     Route: 048
  5. PERAMPANEL [Suspect]
     Active Substance: PERAMPANEL
     Dosage: 112.0 MILLIGRAM(S) (112 MILLIGRAM(S), 1 IN 1 DAY)
     Route: 048

REACTIONS (6)
  - Psychomotor hyperactivity [Recovered/Resolved]
  - Altered state of consciousness [Recovered/Resolved]
  - Unresponsive to stimuli [Recovered/Resolved]
  - Impulsive behaviour [Unknown]
  - Suicide attempt [Unknown]
  - Intentional overdose [Unknown]
